FAERS Safety Report 20043294 (Version 1)
Quarter: 2021Q4

REPORT INFORMATION
  Report Type: Spontaneous
  Country: SE (occurrence: SE)
  Receive Date: 20211108
  Receipt Date: 20211108
  Transmission Date: 20220303
  Serious: Yes (Life-Threatening, Hospitalization, Other)
  Sender: FDA-Public Use
  Company Number: None

PATIENT
  Age: 39 Year
  Sex: Male

DRUGS (8)
  1. BUPROPION HYDROCHLORIDE [Suspect]
     Active Substance: BUPROPION HYDROCHLORIDE
     Indication: Depressed mood
     Dosage: 150 MG, QD
     Route: 048
     Dates: start: 20210618, end: 20210721
  2. ATARAX [Suspect]
     Active Substance: HYDROXYZINE HYDROCHLORIDE
     Indication: Anxiety
     Dosage: 25 MG (AS NECESSARY)
     Route: 048
     Dates: start: 20210607, end: 20210727
  3. TRILEPTAL [Suspect]
     Active Substance: OXCARBAZEPINE
     Indication: Drug withdrawal syndrome
     Dosage: 450 MG, QD
     Route: 048
     Dates: start: 20210616, end: 20210715
  4. NALTREXONE [Suspect]
     Active Substance: NALTREXONE
     Indication: Drug withdrawal syndrome
     Dosage: 50 MG, QD
     Route: 048
     Dates: start: 20210710, end: 20210721
  5. CAMPRAL [Suspect]
     Active Substance: ACAMPROSATE CALCIUM
     Indication: Dependence
     Dosage: 1998 MG, QD
     Route: 048
     Dates: start: 20210501, end: 20210722
  6. ACETAMINOPHEN [Concomitant]
     Active Substance: ACETAMINOPHEN
     Indication: Product used for unknown indication
     Dosage: UNK (2 VB/1 AS NECESSARY)
     Route: 048
     Dates: start: 20200101, end: 20210722
  7. AMITRIPTYLINE [Concomitant]
     Active Substance: AMITRIPTYLINE
     Indication: Product used for unknown indication
     Dosage: 20 MG, QD
     Route: 048
     Dates: start: 20200401, end: 20210722
  8. NAPROXEN [Concomitant]
     Active Substance: NAPROXEN
     Indication: Product used for unknown indication
     Dosage: UNK (1X2VB/1 AS NECESSARY)
     Route: 048
     Dates: start: 20180101, end: 20210722

REACTIONS (1)
  - Stevens-Johnson syndrome [Recovering/Resolving]

NARRATIVE: CASE EVENT DATE: 20210719
